FAERS Safety Report 21419782 (Version 1)
Quarter: 2022Q4

REPORT INFORMATION
  Report Type: Spontaneous
  Country: US (occurrence: None)
  Receive Date: 20221005
  Receipt Date: 20221005
  Transmission Date: 20230113
  Serious: Yes (Hospitalization)
  Sender: FDA-Public Use
  Company Number: None

PATIENT
  Sex: Male

DRUGS (5)
  1. PHOSPHOLINE IODIDE OPHTHALMIC [Suspect]
     Active Substance: ECHOTHIOPHATE IODIDE
     Indication: Open angle glaucoma
     Dosage: OTHER QUANTITY : 0.125 %;  IN RIGHT EYE?
     Route: 047
     Dates: start: 20220709
  2. AMIODARONE [Concomitant]
     Active Substance: AMIODARONE
  3. MIDODRINE [Concomitant]
     Active Substance: MIDODRINE
  4. PILOCARPINE [Concomitant]
  5. RANOLAZINE [Concomitant]
     Active Substance: RANOLAZINE

REACTIONS (4)
  - Blood pressure decreased [None]
  - Blood pressure increased [None]
  - Blood pressure fluctuation [None]
  - Product dose omission in error [None]
